FAERS Safety Report 8900255 (Version 1)
Quarter: 2012Q4

REPORT INFORMATION
  Report Type: Report from Study
  Country: CA (occurrence: CA)
  Receive Date: 20121109
  Receipt Date: 20121109
  Transmission Date: 20130627
  Serious: Yes (Other)
  Sender: FDA-Public Use
  Company Number: CA-JNJFOC-20121100244

PATIENT
  Age: 64 Year
  Sex: Female
  Weight: 63.6 kg

DRUGS (10)
  1. REMICADE [Suspect]
     Indication: CROHN^S DISEASE
     Route: 042
     Dates: start: 20071029
  2. OXYCODONE [Concomitant]
     Route: 065
  3. WELLBUTRIN [Concomitant]
     Route: 065
  4. IMURAN [Concomitant]
     Route: 065
  5. ONDANSETRON [Concomitant]
     Route: 065
  6. CESAMET [Concomitant]
     Route: 065
  7. CANNABIS SATIVA SUBSP. INDICA TOP [Concomitant]
     Route: 065
  8. ADALAT [Concomitant]
     Route: 065
  9. CYMBALTA [Concomitant]
     Route: 065
  10. COVERSYL [Concomitant]
     Route: 065

REACTIONS (3)
  - Blood creatinine increased [Recovered/Resolved]
  - Glomerular filtration rate increased [Recovered/Resolved]
  - Frequent bowel movements [Recovered/Resolved]
